FAERS Safety Report 10675124 (Version 1)
Quarter: 2014Q4

REPORT INFORMATION
  Report Type: Spontaneous
  Country: US (occurrence: US)
  Receive Date: 20141224
  Receipt Date: 20141224
  Transmission Date: 20150529
  Serious: No
  Sender: FDA-Public Use
  Company Number: US-GLAXOSMITHKLINE-US2014040399

PATIENT
  Sex: Male

DRUGS (5)
  1. WELLBUTRIN SR [Suspect]
     Active Substance: BUPROPION HYDROCHLORIDE
     Indication: FEELING ABNORMAL
  2. MEDICATION UNKNOWN [Concomitant]
     Active Substance: UNSPECIFIED INGREDIENT
  3. MEDICATION UNKNOWN [Concomitant]
     Active Substance: UNSPECIFIED INGREDIENT
  4. BACOPA [Concomitant]
  5. WHITE PEONY ROOT [Concomitant]
     Active Substance: PAEONIA LACTIFLORA ROOT

REACTIONS (2)
  - Therapeutic response unexpected [Unknown]
  - Off label use [Unknown]
